FAERS Safety Report 23484193 (Version 1)
Quarter: 2024Q1

REPORT INFORMATION
  Report Type: Spontaneous
  Country: DE (occurrence: DE)
  Receive Date: 20240206
  Receipt Date: 20240206
  Transmission Date: 20240410
  Serious: Yes (Hospitalization)
  Sender: FDA-Public Use
  Company Number: DE-GLAXOSMITHKLINE-DE2024GSK015695

PATIENT

DRUGS (3)
  1. LEVETIRACETAM [Suspect]
     Active Substance: LEVETIRACETAM
     Indication: Seizure
     Dosage: UNK
  2. LAMOTRIGINE [Suspect]
     Active Substance: LAMOTRIGINE
     Indication: Seizure
     Dosage: UNK
  3. LACOSAMIDE [Suspect]
     Active Substance: LACOSAMIDE
     Indication: Seizure
     Dosage: UNK

REACTIONS (11)
  - Panic attack [Unknown]
  - Irritability [Unknown]
  - Anxiety [Unknown]
  - Tremor [Unknown]
  - Dyspnoea [Unknown]
  - Chest pain [Unknown]
  - Fear of death [Unknown]
  - Agoraphobia [Unknown]
  - Social avoidant behaviour [Unknown]
  - Psychogenic seizure [Unknown]
  - Drug ineffective [Unknown]
